FAERS Safety Report 6348071-X (Version None)
Quarter: 2009Q3

REPORT INFORMATION
  Report Type: 
  Country: None (occurrence: None)
  Receive Date: 20090908
  Receipt Date: 20090715
  Transmission Date: 20100115
  Serious: Yes (Death)
  Sender: FDA-Public Use
  Company Number: 8051250

PATIENT
  Age: 67 Year
  Sex: Male

DRUGS (7)
  1. KEPPRA [Suspect]
     Dosage: 1500 MG 2/D PO
     Route: 048
     Dates: start: 20090201, end: 20090710
  2. LAMOTRIGINE [Concomitant]
  3. CAPTOPRIL [Concomitant]
  4. INSULIN [Concomitant]
  5. METFORMIN HCL [Concomitant]
  6. DOSAGE INHALERS [Concomitant]
  7. VIMPAT [Concomitant]

REACTIONS (1)
  - DEATH [None]
